FAERS Safety Report 14776801 (Version 1)
Quarter: 2018Q2

REPORT INFORMATION
  Report Type: Spontaneous
  Country: AU (occurrence: AU)
  Receive Date: 20180419
  Receipt Date: 20180419
  Transmission Date: 20180711
  Serious: Yes (Other)
  Sender: FDA-Public Use
  Company Number: AU-TEVA-2018-AU-882299

PATIENT
  Sex: Male

DRUGS (6)
  1. TORADOL [Suspect]
     Active Substance: KETOROLAC TROMETHAMINE
     Route: 065
  2. OXYCODONE HYDROCHLORIDE. [Suspect]
     Active Substance: OXYCODONE HYDROCHLORIDE
     Route: 065
  3. PROPOFOL. [Suspect]
     Active Substance: PROPOFOL
     Route: 065
  4. FENTORA [Suspect]
     Active Substance: FENTANYL CITRATE
     Indication: PRODUCT USED FOR UNKNOWN INDICATION
     Dosage: DOSAGE UNKNOWN
     Route: 048
  5. PANADEINE FORTE [Suspect]
     Active Substance: ACETAMINOPHEN\CODEINE PHOSPHATE
     Route: 065
  6. VECURONIUM BROMIDE. [Suspect]
     Active Substance: VECURONIUM BROMIDE
     Route: 065

REACTIONS (16)
  - Asthenia [Unknown]
  - Urine analysis abnormal [Unknown]
  - Chills [Unknown]
  - Weight decreased [Unknown]
  - Renal impairment [Unknown]
  - Agitation [Unknown]
  - Muscular weakness [Unknown]
  - Pyrexia [Unknown]
  - Nausea [Unknown]
  - Product use in unapproved indication [Unknown]
  - Blood creatine phosphokinase increased [Unknown]
  - Chromaturia [Unknown]
  - Myalgia [Unknown]
  - Blood creatinine increased [Unknown]
  - Rhabdomyolysis [Unknown]
  - Back pain [Unknown]
